FAERS Safety Report 4963524-4 (Version None)
Quarter: 2006Q2

REPORT INFORMATION
  Report Type: 
  Country: None (occurrence: None)
  Receive Date: 20060404
  Receipt Date: 20060404
  Transmission Date: 20061013
  Serious: Yes (Life-Threatening)
  Sender: FDA-Public Use
  Company Number: None

PATIENT

DRUGS (1)
  1. DR. TICHENOR'S ANTISEPTIC MOUTHWASH [Suspect]

REACTIONS (2)
  - INTENTIONAL DRUG MISUSE [None]
  - MEDICATION ERROR [None]
